FAERS Safety Report 8398699-0 (Version None)
Quarter: 2012Q2

REPORT INFORMATION
  Report Type: 
  Country: None (occurrence: None)
  Receive Date: 20120531
  Receipt Date: 20120524
  Transmission Date: 20120825
  Serious: Yes (Other)
  Sender: FDA-Public Use
  Company Number: DE-B.I. PHARMACEUTICALS,INC./RIDGEFIELD-2012-DE-01359DE

PATIENT
  Sex: Female

DRUGS (8)
  1. SPIRIVA [Suspect]
     Route: 048
     Dates: start: 20120524
  2. CALCITONIN SALMON [Suspect]
     Route: 048
     Dates: start: 20120524
  3. ALENDRONATE SODIUM [Suspect]
     Route: 048
     Dates: start: 20120524
  4. ACETYLCYSTEINE [Suspect]
     Route: 048
     Dates: start: 20120524
  5. MONTELUKAST [Suspect]
     Route: 048
     Dates: start: 20120524
  6. ALBUTEROL [Suspect]
     Route: 048
     Dates: start: 20120524
  7. LEVOTHYROXINE SODIUM [Suspect]
     Route: 048
     Dates: start: 20120524
  8. NEURO RATIOPHARM N [Suspect]
     Route: 048
     Dates: start: 20120524

REACTIONS (2)
  - SUICIDE ATTEMPT [None]
  - SOMNOLENCE [None]
